FAERS Safety Report 7093418-2 (Version None)
Quarter: 2010Q4

REPORT INFORMATION
  Report Type: 
  Country: None (occurrence: None)
  Receive Date: 20101110
  Receipt Date: 20101028
  Transmission Date: 20110411
  Serious: Yes (Other)
  Sender: FDA-Public Use
  Company Number: PHHY2010BR73402

PATIENT
  Sex: Male
  Weight: 70 kg

DRUGS (2)
  1. DICLOFENAC SODIUM [Suspect]
     Indication: ARTHRALGIA
     Dosage: 1 DF, Q12H
     Route: 048
     Dates: start: 20080101
  2. DICLOFENAC SODIUM [Suspect]
     Dosage: 1 DF, Q12H
     Route: 048
     Dates: start: 20101023

REACTIONS (2)
  - ARTHRALGIA [None]
  - BLOOD URINE PRESENT [None]
